FAERS Safety Report 6115419-0 (Version None)
Quarter: 2009Q1

REPORT INFORMATION
  Report Type: 
  Country: None (occurrence: None)
  Receive Date: 20090313
  Receipt Date: 20090310
  Transmission Date: 20090719
  Serious: Yes (Death)
  Sender: FDA-Public Use
  Company Number: FR-AVENTIS-200910947FR

PATIENT
  Sex: Male

DRUGS (1)
  1. RILUTEK [Suspect]
     Indication: AMYOTROPHIC LATERAL SCLEROSIS
     Route: 048

REACTIONS (3)
  - DEATH [None]
  - SUFFOCATION FEELING [None]
  - TACHYCARDIA [None]
